FAERS Safety Report 24953299 (Version 1)
Quarter: 2025Q1

REPORT INFORMATION
  Report Type: Spontaneous
  Country: US (occurrence: US)
  Receive Date: 20250211
  Receipt Date: 20250211
  Transmission Date: 20250408
  Serious: No
  Sender: ROCHE
  Company Number: US-ROCHE-10000199089

PATIENT
  Age: 29 Year
  Sex: Male

DRUGS (1)
  1. XOLAIR [Suspect]
     Active Substance: OMALIZUMAB
     Indication: Urticaria
     Dosage: STRENGTH- 300MG/2ML
     Route: 058

REACTIONS (3)
  - Influenza [Unknown]
  - Illness [Unknown]
  - Off label use [Unknown]
